FAERS Safety Report 5239490-3 (Version None)
Quarter: 2007Q1

REPORT INFORMATION
  Report Type: 
  Country: None (occurrence: None)
  Receive Date: 20070214
  Receipt Date: 20070214
  Transmission Date: 20070707
  Serious: Yes (Other)
  Sender: FDA-Public Use
  Company Number: None

PATIENT
  Age: 46 Year
  Sex: Male
  Weight: 117.9352 kg

DRUGS (1)
  1. OXYCONTIN [Suspect]
     Indication: PROCEDURAL PAIN

REACTIONS (4)
  - ABNORMAL BEHAVIOUR [None]
  - DISINHIBITION [None]
  - LEGAL PROBLEM [None]
  - LOSS OF EMPLOYMENT [None]
